FAERS Safety Report 16752618 (Version 7)
Quarter: 2021Q2

REPORT INFORMATION
  Report Type: Report from Study
  Country: BR (occurrence: BR)
  Receive Date: 20190828
  Receipt Date: 20210618
  Transmission Date: 20210716
  Serious: Yes (Hospitalization, Other)
  Sender: FDA-Public Use
  Company Number: PHHY2019BR200197

PATIENT
  Age: 34 Year
  Sex: Male

DRUGS (5)
  1. COSENTYX [Suspect]
     Active Substance: SECUKINUMAB
     Indication: PSORIASIS
     Dosage: 300 MG
     Route: 065
  2. COSENTYX [Suspect]
     Active Substance: SECUKINUMAB
     Dosage: 300 MG, UNKNOWN
     Route: 065
     Dates: start: 20210603
  3. COSENTYX [Suspect]
     Active Substance: SECUKINUMAB
     Dosage: 300 MG
     Route: 065
     Dates: start: 20190925
  4. COSENTYX [Suspect]
     Active Substance: SECUKINUMAB
     Dosage: 150 MG, QW (5 PENS)
     Route: 065
     Dates: start: 20190525, end: 20190626
  5. COSENTYX [Suspect]
     Active Substance: SECUKINUMAB
     Dosage: UNK
     Route: 065
     Dates: start: 20210502

REACTIONS (21)
  - Arthralgia [Unknown]
  - Skin injury [Not Recovered/Not Resolved]
  - Pyrexia [Unknown]
  - Skin lesion [Not Recovered/Not Resolved]
  - Viral infection [Recovering/Resolving]
  - Vomiting [Unknown]
  - Psoriasis [Not Recovered/Not Resolved]
  - Chest pain [Recovered/Resolved]
  - Pneumonia [Recovered/Resolved]
  - Therapeutic product effect delayed [Unknown]
  - Lung disorder [Unknown]
  - Erythema [Not Recovered/Not Resolved]
  - Incorrect dose administered [Unknown]
  - Cough [Recovered/Resolved]
  - Pain in extremity [Unknown]
  - Decreased immune responsiveness [Unknown]
  - Asthma [Unknown]
  - Dermatitis [Not Recovered/Not Resolved]
  - Needle issue [Unknown]
  - Pulmonary oedema [Recovered/Resolved]
  - Dyspnoea [Recovered/Resolved]

NARRATIVE: CASE EVENT DATE: 20190525
